FAERS Safety Report 22184040 (Version 1)
Quarter: 2023Q2

REPORT INFORMATION
  Report Type: Spontaneous
  Country: MX (occurrence: MX)
  Receive Date: 20230407
  Receipt Date: 20230407
  Transmission Date: 20230721
  Serious: Yes (Hospitalization, Other)
  Sender: FDA-Public Use
  Company Number: None

PATIENT
  Age: 52 Year
  Sex: Male

DRUGS (9)
  1. DEXAMETHASONE [Suspect]
     Active Substance: DEXAMETHASONE
     Indication: COVID-19 pneumonia
  2. DEXAMETHASONE [Suspect]
     Active Substance: DEXAMETHASONE
  3. NEOMYCIN [Concomitant]
     Active Substance: NEOMYCIN
     Indication: Mucormycosis
  4. CIPROFLOXACIN [Concomitant]
     Active Substance: CIPROFLOXACIN
     Indication: Mucormycosis
  5. FLUOROMETHOLONE [Concomitant]
     Active Substance: FLUOROMETHOLONE
     Indication: Mucormycosis
  6. MOXIFLOXACIN [Concomitant]
     Active Substance: MOXIFLOXACIN
     Indication: Mucormycosis
  7. Hyaluronic-acid [Concomitant]
     Indication: Mucormycosis
  8. DORZOLAMIDE [Concomitant]
     Active Substance: DORZOLAMIDE
     Indication: Mucormycosis
  9. TIMOLOL [Concomitant]
     Active Substance: TIMOLOL
     Indication: Mucormycosis

REACTIONS (2)
  - Rhinocerebral mucormycosis [Recovering/Resolving]
  - Off label use [Unknown]
